FAERS Safety Report 9660545 (Version 2)
Quarter: 2013Q4

REPORT INFORMATION
  Report Type: Spontaneous
  Country: US (occurrence: US)
  Receive Date: 20131031
  Receipt Date: 20131113
  Transmission Date: 20140711
  Serious: Yes (Other)
  Sender: FDA-Public Use
  Company Number: US-BRISTOL-MYERS SQUIBB COMPANY-19625383

PATIENT
  Age: 80 Year
  Sex: Male
  Weight: 68.03 kg

DRUGS (9)
  1. ELIQUIS [Suspect]
     Indication: ATRIAL FIBRILLATION
     Dosage: ONCE IN THE MORNING AND ONCE IN THE EVENING,TABLET
  2. DILTIAZEM HCL [Concomitant]
  3. RAMIPRIL [Concomitant]
  4. OMEPRAZOLE [Concomitant]
  5. XANAX [Concomitant]
  6. MULTIVITAMIN [Concomitant]
  7. CENTRUM SILVER [Concomitant]
  8. CRESTOR [Concomitant]
     Indication: PREMEDICATION
  9. COENZYME-Q10 [Concomitant]
     Indication: PREMEDICATION

REACTIONS (1)
  - Lung neoplasm malignant [Unknown]
